FAERS Safety Report 5049828-8 (Version None)
Quarter: 2006Q3

REPORT INFORMATION
  Report Type: 
  Country: None (occurrence: None)
  Receive Date: 20060706
  Receipt Date: 20060621
  Transmission Date: 20061208
  Serious: Yes (Hospitalization, Other)
  Sender: FDA-Public Use
  Company Number: 2006S1005732

PATIENT
  Age: 35 Year
  Sex: Female
  Weight: 116.892 kg

DRUGS (12)
  1. NESIRITIDE - BLINDED INJECTION (0.01 UG/KG) [Suspect]
     Indication: CARDIAC FAILURE
     Dosage: SEE IMAGE
     Dates: start: 20060207
  2. NESIRITIDE - BLINDED INJECTION (0.01 UG/KG) [Suspect]
     Indication: CARDIAC FAILURE
     Dosage: SEE IMAGE
     Dates: start: 20060207
  3. FUROSEMIDE [Suspect]
     Indication: DIURETIC EFFECT
     Dosage: 20 MG; QD; ORAL
     Route: 048
     Dates: start: 20051117, end: 20060304
  4. ACETYLSALICYLIC ACID SRT [Concomitant]
  5. CARVEDILOL [Concomitant]
  6. TRANDOLAPRIL [Concomitant]
  7. AMIODARONE HYDROCHLORIDE [Concomitant]
  8. HYDRALAZINE HYDROCHLORIDE [Concomitant]
  9. ISOSORBIDE [Concomitant]
  10. BENAZEPRIL HYDROCHLORIDE [Concomitant]
  11. HYDRALAZINE HCL [Concomitant]
  12. ISOSORBIDE DINITRATE/HYDRALAZINE [Concomitant]

REACTIONS (2)
  - HYPOTENSION [None]
  - RENAL FAILURE ACUTE [None]
